FAERS Safety Report 5037519-9 (Version None)
Quarter: 2006Q2

REPORT INFORMATION
  Report Type: 
  Country: None (occurrence: None)
  Receive Date: 20060608
  Receipt Date: 20060324
  Transmission Date: 20061013
  Serious: Yes (Other)
  Sender: FDA-Public Use
  Company Number: HQWYE571529MAR06

PATIENT
  Age: 11 Year
  Sex: Male

DRUGS (3)
  1. LORATADINE [Suspect]
     Indication: EAR CONGESTION
     Dosage: 1 TABLET X 1, ORAL
     Route: 048
     Dates: start: 20060324, end: 20060324
  2. LORATADINE [Suspect]
     Indication: SINUSITIS
     Dosage: 1 TABLET X 1, ORAL
     Route: 048
     Dates: start: 20060324, end: 20060324
  3. MOTRIN [Concomitant]

REACTIONS (1)
  - DRUG INEFFECTIVE [None]
